FAERS Safety Report 8515986-3 (Version None)
Quarter: 2012Q3

REPORT INFORMATION
  Report Type: 
  Country: None (occurrence: None)
  Receive Date: 20120717
  Receipt Date: 20120711
  Transmission Date: 20120928
  Serious: Yes (Other)
  Sender: FDA-Public Use
  Company Number: BR-PFIZER INC-2009193118

PATIENT
  Age: 64 Year
  Sex: Male
  Weight: 83 kg

DRUGS (14)
  1. NEURONTIN [Suspect]
     Dosage: 600 MG, 2X/DAY
     Route: 048
     Dates: start: 20090301
  2. DORFLEX [Suspect]
     Indication: PAIN
     Dosage: UNK
  3. OMEPRAZOLE [Concomitant]
     Indication: GASTROOESOPHAGEAL REFLUX DISEASE
     Dosage: UNK
  4. NEURONTIN [Suspect]
     Indication: NEURALGIA
     Dosage: 600 MG, 1X/DAY
     Route: 048
     Dates: start: 20090301, end: 20090301
  5. NEURONTIN [Suspect]
     Dosage: 600 MG, 3X/DAY
     Route: 048
  6. LYRICA [Suspect]
     Dosage: 600 MG, 2X/DAY
     Dates: start: 20090818
  7. OMEPRAZOLE [Concomitant]
     Indication: GASTRIC DISORDER
  8. TAMSULOSIN [Concomitant]
     Dosage: UNK
  9. TAMSULOSIN HYDROCHLORIDE [Concomitant]
     Dosage: UNK
  10. PANTOPRAZOLE [Concomitant]
     Dosage: 80 MG, UNK
  11. LYRICA [Suspect]
     Dosage: 600 MG EVERY 8 HOURS
  12. ALPRAZOLAM [Concomitant]
     Indication: INSOMNIA
     Dosage: 0.5 MG, UNK
  13. LYRICA [Suspect]
     Indication: NEURALGIA
     Dosage: 300 MG, 1X/DAY
  14. LYRICA [Suspect]
     Dosage: 600 MG, 1X/DAY

REACTIONS (15)
  - SOMNOLENCE [None]
  - HERNIA [None]
  - PROSTATIC DISORDER [None]
  - WEIGHT INCREASED [None]
  - VISION BLURRED [None]
  - BLOOD PRESSURE INCREASED [None]
  - INSOMNIA [None]
  - LISTLESS [None]
  - LIBIDO DECREASED [None]
  - PAIN [None]
  - SPEECH DISORDER [None]
  - DIZZINESS [None]
  - TOOTHACHE [None]
  - FATIGUE [None]
  - INCREASED APPETITE [None]
